FAERS Safety Report 8340504 (Version 3)
Quarter: 2015Q1

REPORT INFORMATION
  Report Type: Report from Study
  Country: US (occurrence: US)
  Receive Date: 20120117
  Receipt Date: 20150226
  Transmission Date: 20150721
  Serious: Yes (Death, Other)
  Sender: FDA-Public Use
  Company Number: US-ROCHE-1028639

PATIENT
  Age: 49 Year
  Sex: Female
  Weight: 59.93 kg

DRUGS (10)
  1. LEVAQUIN [Concomitant]
     Active Substance: LEVOFLOXACIN
  2. ZOLOFT [Concomitant]
     Active Substance: SERTRALINE HYDROCHLORIDE
  3. TAMOXIFEN [Concomitant]
     Active Substance: TAMOXIFEN
  4. ZOMETA [Concomitant]
     Active Substance: ZOLEDRONIC ACID
     Route: 065
  5. XELODA [Suspect]
     Active Substance: CAPECITABINE
     Route: 048
     Dates: end: 201010
  6. CYCLOBENZAPRINE [Concomitant]
     Active Substance: CYCLOBENZAPRINE
  7. AVASTIN [Suspect]
     Active Substance: BEVACIZUMAB
     Indication: BREAST CANCER
     Route: 042
     Dates: start: 201002, end: 20101007
  8. XELODA [Suspect]
     Active Substance: CAPECITABINE
     Indication: BREAST CANCER FEMALE
     Dosage: 3 PILLS AM AND PM
     Route: 048
     Dates: start: 20100226, end: 20100429
  9. IBUPROFEN. [Concomitant]
     Active Substance: IBUPROFEN
  10. LOTREL [Concomitant]
     Active Substance: AMLODIPINE BESYLATE\BENAZEPRIL HYDROCHLORIDE

REACTIONS (19)
  - Hypoaesthesia [Recovered/Resolved with Sequelae]
  - Blood pressure increased [Unknown]
  - Gait disturbance [Unknown]
  - Skin fissures [Not Recovered/Not Resolved]
  - Vulvovaginal pruritus [Unknown]
  - Diarrhoea [Unknown]
  - Back pain [Unknown]
  - Bone pain [Unknown]
  - Lymphadenopathy mediastinal [Unknown]
  - Asthenia [Unknown]
  - Vulvovaginal discomfort [Unknown]
  - Death [Fatal]
  - Peripheral swelling [Recovered/Resolved with Sequelae]
  - Dyspnoea [Unknown]
  - Dry skin [Not Recovered/Not Resolved]
  - Pulmonary oedema [Recovering/Resolving]
  - Cough [Unknown]
  - Erythema [Not Recovered/Not Resolved]
  - Pleural effusion [Not Recovered/Not Resolved]

NARRATIVE: CASE EVENT DATE: 201009
